FAERS Safety Report 5929554-0 (Version None)
Quarter: 2008Q4

REPORT INFORMATION
  Report Type: 
  Country: None (occurrence: None)
  Receive Date: 20081024
  Receipt Date: 20081023
  Transmission Date: 20090506
  Serious: Yes (Hospitalization)
  Sender: FDA-Public Use
  Company Number: B0543157A

PATIENT
  Age: 64 Year
  Sex: Female

DRUGS (8)
  1. SAWACILLIN [Suspect]
     Indication: HELICOBACTER INFECTION
     Dosage: 250MG TWICE PER DAY
     Route: 048
     Dates: start: 20080912, end: 20080914
  2. LANSOPRAZOLE [Suspect]
     Indication: HELICOBACTER INFECTION
     Dosage: 30MG TWICE PER DAY
     Route: 048
     Dates: start: 20080912, end: 20080914
  3. CLARITHROMYCIN [Suspect]
     Indication: HELICOBACTER INFECTION
     Dosage: 200MG TWICE PER DAY
     Route: 048
     Dates: start: 20080912, end: 20080914
  4. OLMETEC [Concomitant]
     Dosage: 20MG PER DAY
     Route: 048
  5. ADALAT [Concomitant]
     Dosage: 10MG PER DAY
     Route: 048
  6. THYRADIN [Concomitant]
     Dosage: 50MCG PER DAY
     Route: 048
  7. MEVAN [Concomitant]
     Dosage: 10MG PER DAY
     Route: 048
  8. URSODIOL [Concomitant]
     Dosage: 100MG THREE TIMES PER DAY
     Route: 048

REACTIONS (3)
  - DIARRHOEA [None]
  - GASTROENTERITIS [None]
  - VOMITING [None]
